FAERS Safety Report 5237053-7 (Version None)
Quarter: 2007Q1

REPORT INFORMATION
  Report Type: 
  Country: None (occurrence: None)
  Receive Date: 20070209
  Receipt Date: 20070124
  Transmission Date: 20070707
  Serious: Yes (Other)
  Sender: FDA-Public Use
  Company Number: VER_0041_2007

PATIENT
  Age: 13 Year
  Sex: Male

DRUGS (2)
  1. EPINEPHRINE [Suspect]
     Indication: ANAPHYLACTIC REACTION
     Dosage: 0.3 MG SC
     Route: 058
     Dates: start: 20070118
  2. EPINEPHRINE [Suspect]
     Indication: HYPERSENSITIVITY
     Dosage: 0.3 MG SC
     Route: 058
     Dates: start: 20070118

REACTIONS (3)
  - ANAPHYLACTIC REACTION [None]
  - DEVICE CONNECTION ISSUE [None]
  - FOOD ALLERGY [None]
